FAERS Safety Report 7286485-4 (Version None)
Quarter: 2011Q1

REPORT INFORMATION
  Report Type: 
  Country: None (occurrence: None)
  Receive Date: 20110210
  Receipt Date: 20110131
  Transmission Date: 20110831
  Serious: Yes (Death, Hospitalization, Other)
  Sender: FDA-Public Use
  Company Number: JP-ROCHE-712489

PATIENT
  Sex: Male
  Weight: 68 kg

DRUGS (4)
  1. ERBITUX [Suspect]
     Indication: GASTRIC CANCER
     Route: 042
     Dates: start: 20100518, end: 20100518
  2. CAPECITABINE [Suspect]
     Indication: GASTRIC CANCER
     Dosage: STRENGTH: 300. TEMPORARY DISCONTNUATION
     Route: 048
     Dates: start: 20100518, end: 20100601
  3. CISPLATIN [Suspect]
     Indication: GASTRIC CANCER
     Dosage: ROUTE: INTRAVENOUS NOS, TEMPORARY DISCONTINUATION
     Route: 042
     Dates: start: 20100518, end: 20100518
  4. ERBITUX [Suspect]
     Dosage: ROUTE: INTRAVENOUS NOS, START DATE: 2010
     Route: 042
     Dates: end: 20100609

REACTIONS (5)
  - WHITE BLOOD CELL COUNT DECREASED [None]
  - SEPTIC SHOCK [None]
  - DEVICE RELATED INFECTION [None]
  - DEEP VEIN THROMBOSIS [None]
  - NEUTROPHIL COUNT DECREASED [None]
